FAERS Safety Report 16262735 (Version 1)
Quarter: 2019Q2

REPORT INFORMATION
  Report Type: Spontaneous
  Country: IT (occurrence: IT)
  Receive Date: 20190502
  Receipt Date: 20190502
  Transmission Date: 20190711
  Serious: Yes (Life-Threatening, Hospitalization, Other)
  Sender: FDA-Public Use
  Company Number: IT-AUROBINDO-AUR-APL-2019-017943

PATIENT

DRUGS (1)
  1. PARACETAMOL TABLET [Suspect]
     Active Substance: ACETAMINOPHEN
     Indication: PYREXIA
     Dosage: 7 GRAM, ONCE A DAY
     Route: 048
     Dates: start: 20190219, end: 20190220

REACTIONS (2)
  - Acute hepatic failure [Recovered/Resolved]
  - Drug abuse [Recovered/Resolved]

NARRATIVE: CASE EVENT DATE: 20190220
